FAERS Safety Report 16902735 (Version 1)
Quarter: 2019Q4

REPORT INFORMATION
  Report Type: Spontaneous
  Country: BE (occurrence: BE)
  Receive Date: 20191010
  Receipt Date: 20191010
  Transmission Date: 20200122
  Serious: Yes (Hospitalization, Other)
  Sender: FDA-Public Use
  Company Number: BE-AUROBINDO-AUR-APL-2019-064814

PATIENT
  Age: 68 Year
  Sex: Male

DRUGS (5)
  1. AMOXICILLIN+CLAVULANIC ACID [Suspect]
     Active Substance: AMOXICILLIN\CLAVULANIC ACID
     Indication: PNEUMONIA
  2. VALACYCLOVIR [Suspect]
     Active Substance: VALACYCLOVIR HYDROCHLORIDE
     Indication: HERPES ZOSTER
     Dosage: UNK, 3X10 MG/KG/DAY
     Route: 065
  3. AMOXICILLIN+CLAVULANIC ACID [Suspect]
     Active Substance: AMOXICILLIN\CLAVULANIC ACID
     Indication: CELLULITIS
     Dosage: UNK
     Route: 065
  4. AMOXICILLIN+CLAVULANIC ACID [Suspect]
     Active Substance: AMOXICILLIN\CLAVULANIC ACID
     Indication: SUPERINFECTION BACTERIAL
  5. METHYLPREDNISOLONE. [Suspect]
     Active Substance: METHYLPREDNISOLONE
     Indication: HERPES ZOSTER OTICUS
     Dosage: 125 MILLIGRAM, IN TAPERING DOSE
     Route: 065

REACTIONS (16)
  - Herpes zoster oticus [Unknown]
  - Pneumonia [Unknown]
  - Skin lesion [Recovered/Resolved]
  - Drug ineffective [Unknown]
  - Vertigo [Not Recovered/Not Resolved]
  - Deafness [Not Recovered/Not Resolved]
  - Rales [Unknown]
  - Staphylococcal infection [Unknown]
  - Gait disturbance [Unknown]
  - Varicella zoster virus infection [Unknown]
  - Tinnitus [Recovered/Resolved]
  - Blister [Unknown]
  - Polymerase chain reaction [Unknown]
  - Facial paralysis [Recovered/Resolved]
  - Headache [Unknown]
  - Herpes zoster [Unknown]
